FAERS Safety Report 8225865-7 (Version None)
Quarter: 2012Q1

REPORT INFORMATION
  Report Type: 
  Country: None (occurrence: None)
  Receive Date: 20120321
  Receipt Date: 20120312
  Transmission Date: 20120608
  Serious: Yes (Other)
  Sender: FDA-Public Use
  Company Number: US-ROCHE-749858

PATIENT
  Sex: Male
  Weight: 61.2 kg

DRUGS (2)
  1. CLARAVIS [Suspect]
     Indication: PRODUCT USED FOR UNKNOWN INDICATION
     Route: 065
  2. ACCUTANE [Suspect]
     Indication: ACNE
     Route: 065
     Dates: start: 20070301, end: 20071001

REACTIONS (8)
  - ASPARTATE AMINOTRANSFERASE INCREASED [None]
  - CHOLANGITIS SCLEROSING [None]
  - COLITIS ULCERATIVE [None]
  - ALANINE AMINOTRANSFERASE INCREASED [None]
  - INFLAMMATORY BOWEL DISEASE [None]
  - BONE DENSITY DECREASED [None]
  - BLOOD TRIGLYCERIDES INCREASED [None]
  - GAMMA-GLUTAMYLTRANSFERASE INCREASED [None]
